FAERS Safety Report 6855544-X (Version None)
Quarter: 2010Q3

REPORT INFORMATION
  Report Type: 
  Country: None (occurrence: None)
  Receive Date: 20100719
  Receipt Date: 20100708
  Transmission Date: 20110219
  Serious: Yes (Other)
  Sender: FDA-Public Use
  Company Number: FR-JNJFOC-20100703709

PATIENT
  Age: 40 Year
  Sex: Female

DRUGS (5)
  1. RISPERDAL CONSTA [Suspect]
     Indication: BORDERLINE PERSONALITY DISORDER
     Route: 065
  2. RISPERDAL CONSTA [Suspect]
     Route: 065
  3. RISPERDAL CONSTA [Suspect]
     Route: 065
  4. CORTICOSTEROID [Concomitant]
     Indication: THROMBOCYTOPENIA
     Route: 065
  5. DEROXAT [Concomitant]
     Route: 065

REACTIONS (2)
  - FACE OEDEMA [None]
  - OFF LABEL USE [None]
